FAERS Safety Report 8652372 (Version 3)
Quarter: 2013Q2

REPORT INFORMATION
  Report Type: Spontaneous
  Country: US (occurrence: None)
  Receive Date: 20120606
  Receipt Date: 20130415
  Transmission Date: 20140414
  Serious: Yes (Other)
  Sender: FDA-Public Use
  Company Number: 2012032513

PATIENT
  Age: 44 Year
  Sex: Female
  Weight: 70.31 kg

DRUGS (1)
  1. HIZENTRA [Suspect]
     Indication: IMMUNODEFICIENCY COMMON VARIABLE
     Dosage: (10 G 1X/WEEK, 4 SITES OVER 2 HOURS SINCE FEB-2012 SUBCUTANEOUS)
     Route: 058

REACTIONS (6)
  - Pain [None]
  - Nephrolithiasis [None]
  - Blood oestrogen decreased [None]
  - Malaise [None]
  - Weight abnormal [None]
  - Feeling hot [None]
